FAERS Safety Report 5527876-9 (Version None)
Quarter: 2007Q4

REPORT INFORMATION
  Report Type: 
  Country: None (occurrence: None)
  Receive Date: 20071126
  Receipt Date: 20071126
  Transmission Date: 20080405
  Serious: No
  Sender: FDA-Public Use
  Company Number: None

PATIENT
  Age: 44 Year
  Sex: Female
  Weight: 56.6996 kg

DRUGS (1)
  1. SULFAMETHOXAZOLE AND TRIMETHOPRIM DOUBLE STRENGTH [Suspect]
     Indication: CYSTITIS
     Dosage: 1 TABLET  TWICE DAILY PO
     Route: 048
     Dates: start: 20071113, end: 20071119

REACTIONS (9)
  - ANXIETY [None]
  - CHILLS [None]
  - DRY MOUTH [None]
  - PAIN [None]
  - PRURITUS [None]
  - RASH GENERALISED [None]
  - SKIN EXFOLIATION [None]
  - SKIN WARM [None]
  - TREMOR [None]
